FAERS Safety Report 7223204-1 (Version None)
Quarter: 2011Q1

REPORT INFORMATION
  Report Type: 
  Country: None (occurrence: None)
  Receive Date: 20110112
  Receipt Date: 20100303
  Transmission Date: 20110831
  Serious: No
  Sender: FDA-Public Use
  Company Number: US-ALLERGAN-1002778US

PATIENT
  Sex: Female

DRUGS (6)
  1. FISH OIL [Concomitant]
  2. VITAMIN TAB [Concomitant]
  3. RESTASIS [Suspect]
     Indication: DRY EYE
     Dosage: UNK
     Route: 047
  4. LIPITOR [Concomitant]
  5. PROTONIX [Concomitant]
  6. REFRESH PLUS [Concomitant]

REACTIONS (3)
  - EYE IRRITATION [None]
  - OCULAR HYPERAEMIA [None]
  - LACRIMATION INCREASED [None]
